FAERS Safety Report 8023361 (Version 4)
Quarter: 2013Q4

REPORT INFORMATION
  Report Type: Spontaneous
  Country: US (occurrence: US)
  Receive Date: 20110706
  Receipt Date: 20131230
  Transmission Date: 20140711
  Serious: Yes (Hospitalization)
  Sender: FDA-Public Use
  Company Number: US-GLAXOSMITHKLINE-A0903066A

PATIENT
  Age: 37 Year
  Sex: Male
  Weight: 165.9 kg

DRUGS (9)
  1. AVANDIA [Suspect]
     Indication: DIABETES MELLITUS
     Route: 048
     Dates: start: 200408, end: 200707
  2. AVANDAMET [Suspect]
     Indication: DIABETES MELLITUS
     Route: 048
  3. METFORMIN [Concomitant]
  4. AMARYL [Concomitant]
  5. PAXIL [Concomitant]
  6. METOPROLOL [Concomitant]
  7. LISINOPRIL [Concomitant]
  8. INSULIN [Concomitant]
  9. PROTONIX [Concomitant]

REACTIONS (3)
  - Acute myocardial infarction [Unknown]
  - Coronary artery disease [Unknown]
  - Angina unstable [Unknown]
